FAERS Safety Report 19949363 (Version 1)
Quarter: 2021Q4

REPORT INFORMATION
  Report Type: Spontaneous
  Country: US (occurrence: US)
  Receive Date: 20211012
  Receipt Date: 20211012
  Transmission Date: 20220303
  Serious: No
  Sender: FDA-Public Use
  Company Number: None

PATIENT
  Age: 36 Year
  Sex: Female
  Weight: 87.75 kg

DRUGS (1)
  1. VCF CONTRACEPTIVE PRE-FILLED APPLICATORS [Suspect]
     Active Substance: NONOXYNOL-9
     Indication: Prophylaxis
     Dosage: ?          QUANTITY:10 SUPPOSITORY(IES);
     Route: 067
     Dates: start: 20211012, end: 20211012

REACTIONS (6)
  - Prophylaxis [None]
  - Vulvovaginal swelling [None]
  - Dyspareunia [None]
  - Pruritus [None]
  - Dysuria [None]
  - Muscle tightness [None]

NARRATIVE: CASE EVENT DATE: 20211012
